FAERS Safety Report 6417407-3 (Version None)
Quarter: 2009Q4

REPORT INFORMATION
  Report Type: 
  Country: None (occurrence: None)
  Receive Date: 20091026
  Receipt Date: 20091015
  Transmission Date: 20100525
  Serious: Yes (Other)
  Sender: FDA-Public Use
  Company Number: DE-2009-2127

PATIENT
  Sex: Female

DRUGS (1)
  1. NAVELBINE [Suspect]
     Indication: METASTASES TO MENINGES
     Dates: start: 20090901

REACTIONS (1)
  - CONVULSION [None]
